FAERS Safety Report 4677249-6 (Version None)
Quarter: 2005Q2

REPORT INFORMATION
  Report Type: 
  Country: None (occurrence: None)
  Receive Date: 20050526
  Receipt Date: 20050516
  Transmission Date: 20051028
  Serious: Yes (Death)
  Sender: FDA-Public Use
  Company Number: 2005-01676

PATIENT
  Age: 54 Year
  Sex: Female

DRUGS (2)
  1. MORPHINE SULFATE [Suspect]
     Indication: ANALGESIC EFFECT
     Dosage: SEE IMAGE
  2. BUPIVACAINE [Concomitant]

REACTIONS (2)
  - ANAESTHETIC COMPLICATION [None]
  - BRAIN HERNIATION [None]
